FAERS Safety Report 7874492-X (Version None)
Quarter: 2011Q4

REPORT INFORMATION
  Report Type: 
  Country: None (occurrence: None)
  Receive Date: 20111030
  Receipt Date: 20110520
  Transmission Date: 20120403
  Serious: No
  Sender: FDA-Public Use
  Company Number: US-AMGEN-USASP2011026348

PATIENT
  Age: 18 Year
  Sex: Male

DRUGS (1)
  1. ENBREL [Suspect]
     Indication: PSORIASIS
     Dates: start: 20110101

REACTIONS (4)
  - WEIGHT INCREASED [None]
  - DIARRHOEA [None]
  - WEIGHT DECREASED [None]
  - HAEMATOCHEZIA [None]
